FAERS Safety Report 25939575 (Version 4)
Quarter: 2025Q4

REPORT INFORMATION
  Report Type: Spontaneous
  Country: US (occurrence: US)
  Receive Date: 20251020
  Receipt Date: 20251114
  Transmission Date: 20260117
  Serious: Yes (Hospitalization, Other)
  Sender: NOVARTIS
  Company Number: US-002147023-NVSC2025US157994

PATIENT
  Sex: Male
  Weight: 106.59 kg

DRUGS (2)
  1. PLUVICTO [Suspect]
     Active Substance: LUTETIUM LU-177 VIPIVOTIDE TETRAXETAN
     Indication: Prostate cancer
     Dosage: 220 MCI (EVERY 6 WEEKS)
     Route: 065
     Dates: start: 20250717, end: 20251002
  2. PLUVICTO [Suspect]
     Active Substance: LUTETIUM LU-177 VIPIVOTIDE TETRAXETAN
     Indication: Bone cancer

REACTIONS (6)
  - Chest pain [Unknown]
  - Prostate cancer [Unknown]
  - Malignant neoplasm progression [Unknown]
  - Bone cancer [Unknown]
  - Back pain [Unknown]
  - Drug ineffective [Not Recovered/Not Resolved]
